FAERS Safety Report 10181545 (Version 1)
Quarter: 2014Q2

REPORT INFORMATION
  Report Type: Spontaneous
  Country: BR (occurrence: BR)
  Receive Date: 20140519
  Receipt Date: 20140519
  Transmission Date: 20141212
  Serious: Yes (Other)
  Sender: FDA-Public Use
  Company Number: BR-VIIV HEALTHCARE LIMITED-A1073589A

PATIENT
  Age: 33 Year
  Sex: Male
  Weight: 65 kg

DRUGS (2)
  1. BIOVIR [Suspect]
     Indication: PRODUCT USED FOR UNKNOWN INDICATION
     Route: 065
  2. LOPINAVIR + RITONAVIR [Suspect]
     Indication: PRODUCT USED FOR UNKNOWN INDICATION
     Route: 065

REACTIONS (3)
  - Suicide attempt [Recovered/Resolved]
  - Rash [Unknown]
  - Pruritus [Unknown]
